FAERS Safety Report 24567461 (Version 2)
Quarter: 2025Q1

REPORT INFORMATION
  Report Type: Report from Study
  Country: US (occurrence: US)
  Receive Date: 20241030
  Receipt Date: 20250124
  Transmission Date: 20250409
  Serious: Yes (Hospitalization)
  Sender: ABBVIE
  Company Number: US-ABBVIE-5981128

PATIENT
  Age: 55 Year
  Sex: Female

DRUGS (2)
  1. HUMIRA [Suspect]
     Active Substance: ADALIMUMAB
     Indication: Ankylosing spondylitis
     Dosage: FORM STRENGTH: 40 MILLIGRAM
     Route: 058
     Dates: start: 202402
  2. HUMIRA [Suspect]
     Active Substance: ADALIMUMAB
     Indication: Systemic lupus erythematosus

REACTIONS (23)
  - Deep vein thrombosis [Unknown]
  - Hiatus hernia [Unknown]
  - Feeding disorder [Recovering/Resolving]
  - Procedural complication [Unknown]
  - Chest pain [Not Recovered/Not Resolved]
  - Wheezing [Unknown]
  - Gastrointestinal motility disorder [Recovering/Resolving]
  - Cough [Unknown]
  - Nerve injury [Recovering/Resolving]
  - Inflammation [Unknown]
  - Abdominal discomfort [Recovering/Resolving]
  - Headache [Recovered/Resolved]
  - Dysphagia [Recovering/Resolving]
  - Dyspnoea [Unknown]
  - Bladder dysfunction [Recovering/Resolving]
  - Infusion site warmth [Unknown]
  - Illness [Recovering/Resolving]
  - Crepitations [Unknown]
  - Malaise [Unknown]
  - Choking sensation [Recovering/Resolving]
  - Panic attack [Unknown]
  - Functional gastrointestinal disorder [Recovering/Resolving]
  - Infusion site pain [Unknown]

NARRATIVE: CASE EVENT DATE: 20240101
